FAERS Safety Report 5576942-0 (Version None)
Quarter: 2007Q4

REPORT INFORMATION
  Report Type: 
  Country: None (occurrence: None)
  Receive Date: 20071130
  Receipt Date: 20070727
  Transmission Date: 20080405
  Serious: No
  Sender: FDA-Public Use
  Company Number: US200707006795

PATIENT
  Age: 42 Year
  Sex: Female
  Weight: 105.2 kg

DRUGS (3)
  1. BYETTA [Suspect]
     Indication: TYPE 2 DIABETES MELLITUS
     Dosage: 5 UG, 2/D, SUBCUTANEOUS
     Route: 058
     Dates: start: 20070718
  2. METFORMIN HCL [Concomitant]
  3. ACTOS [Concomitant]

REACTIONS (10)
  - DIZZINESS [None]
  - DRY MOUTH [None]
  - FEELING JITTERY [None]
  - HEADACHE [None]
  - INFECTION [None]
  - NAUSEA [None]
  - PHARYNGOLARYNGEAL PAIN [None]
  - RHINORRHOEA [None]
  - STOMACH DISCOMFORT [None]
  - WEIGHT DECREASED [None]
